FAERS Safety Report 5022560-2 (Version None)
Quarter: 2006Q2

REPORT INFORMATION
  Report Type: 
  Country: None (occurrence: None)
  Receive Date: 20060605
  Receipt Date: 20060522
  Transmission Date: 20061013
  Serious: Yes (Other)
  Sender: FDA-Public Use
  Company Number: DE-2006-013019

PATIENT
  Age: 60 Year
  Sex: Female

DRUGS (2)
  1. BETASERON [Suspect]
     Dosage: SUBCUTANEOUS
     Route: 058
     Dates: start: 20010101
  2. ACETYLSALICYLIC ACID SRT [Concomitant]

REACTIONS (6)
  - BLOOD UREA INCREASED [None]
  - CONDITION AGGRAVATED [None]
  - HYPERKALAEMIA [None]
  - PROGRESSIVE MULTIPLE SCLEROSIS [None]
  - RELAPSING-REMITTING MULTIPLE SCLEROSIS [None]
  - THROMBOCYTHAEMIA [None]
